FAERS Safety Report 24801719 (Version 4)
Quarter: 2025Q1

REPORT INFORMATION
  Report Type: Spontaneous
  Country: US (occurrence: US)
  Receive Date: 20250102
  Receipt Date: 20250123
  Transmission Date: 20250409
  Serious: Yes (Other)
  Sender: PFIZER
  Company Number: US-PFIZER INC-PV202400154605

PATIENT
  Sex: Male

DRUGS (6)
  1. ETOMIDATE [Suspect]
     Active Substance: ETOMIDATE
     Indication: Induction of anaesthesia
  2. ETOMIDATE [Suspect]
     Active Substance: ETOMIDATE
     Indication: Sedation
  3. ROCURONIUM BROMIDE [Suspect]
     Active Substance: ROCURONIUM BROMIDE
  4. ROCURONIUM BROMIDE [Suspect]
     Active Substance: ROCURONIUM BROMIDE
  5. MIDAZOLAM [Concomitant]
     Active Substance: MIDAZOLAM
  6. FENTANYL [Concomitant]
     Active Substance: FENTANYL

REACTIONS (4)
  - Apnoea [Unknown]
  - Agitation [Unknown]
  - Muscle twitching [Unknown]
  - Drug ineffective [Unknown]
